FAERS Safety Report 14151800 (Version 3)
Quarter: 2017Q4

REPORT INFORMATION
  Report Type: Spontaneous
  Country: US (occurrence: US)
  Receive Date: 20171102
  Receipt Date: 20171127
  Transmission Date: 20180321
  Serious: No
  Sender: FDA-Public Use
  Company Number: US-PFIZER INC-2017466907

PATIENT
  Age: 51 Year
  Sex: Female

DRUGS (1)
  1. GENOTROPIN [Suspect]
     Active Substance: SOMATROPIN
     Indication: CRANIOCEREBRAL INJURY
     Dosage: 0.4 MG, DAILY (AT BEDTIME)
     Dates: start: 20171014

REACTIONS (4)
  - Headache [Recovered/Resolved]
  - Device leakage [Recovered/Resolved]
  - Product odour abnormal [Recovered/Resolved]
  - Drug dose omission [Recovered/Resolved]
